FAERS Safety Report 13329399 (Version 5)
Quarter: 2017Q2

REPORT INFORMATION
  Report Type: Spontaneous
  Country: IT (occurrence: IT)
  Receive Date: 20170313
  Receipt Date: 20170413
  Transmission Date: 20170830
  Serious: Yes (Death, Life-Threatening, Hospitalization)
  Sender: FDA-Public Use
  Company Number: IT-SA-2017SA038322

PATIENT
  Age: 45 Year
  Sex: Male
  Weight: 105 kg

DRUGS (10)
  1. CERITINIB [Concomitant]
     Active Substance: CERITINIB
     Indication: ALK GENE REARRANGEMENT POSITIVE
     Route: 048
     Dates: start: 20170209, end: 20170307
  2. CLEXANE T [Suspect]
     Active Substance: ENOXAPARIN SODIUM
     Indication: DEEP VEIN THROMBOSIS
     Dosage: 10,000 IU AXA / 1 ML SOLUTION FOR INJECTION FOR USE SUBCUTANEOUS
     Route: 058
     Dates: start: 20170104
  3. CERITINIB [Concomitant]
     Active Substance: CERITINIB
     Indication: LUNG NEOPLASM MALIGNANT
     Route: 048
     Dates: start: 20170209, end: 20170307
  4. SOLDESAM [Concomitant]
     Active Substance: DEXAMETHASONE
     Indication: LUNG NEOPLASM MALIGNANT
     Route: 048
     Dates: start: 20170111
  5. CLEXANE T [Suspect]
     Active Substance: ENOXAPARIN SODIUM
     Indication: PULMONARY EMBOLISM
     Dosage: 10,000 IU AXA / 1 ML SOLUTION FOR INJECTION FOR USE SUBCUTANEOUS
     Route: 058
     Dates: start: 20170113, end: 20170125
  6. CERITINIB [Concomitant]
     Active Substance: CERITINIB
     Indication: ALK GENE REARRANGEMENT POSITIVE
     Route: 048
     Dates: start: 20161125, end: 20170125
  7. PANTOPRAZOLE [Concomitant]
     Active Substance: PANTOPRAZOLE
     Route: 048
  8. CLEXANE T [Suspect]
     Active Substance: ENOXAPARIN SODIUM
     Indication: PULMONARY EMBOLISM
     Dosage: 10,000 IU AXA / 1 ML SOLUTION FOR INJECTION FOR USE SUBCUTANEOUS
     Route: 058
     Dates: start: 20170104
  9. CLEXANE T [Suspect]
     Active Substance: ENOXAPARIN SODIUM
     Indication: DEEP VEIN THROMBOSIS
     Dosage: 10,000 IU AXA / 1 ML SOLUTION FOR INJECTION FOR USE SUBCUTANEOUS
     Route: 058
     Dates: start: 20170113, end: 20170125
  10. CERITINIB [Concomitant]
     Active Substance: CERITINIB
     Indication: LUNG NEOPLASM MALIGNANT
     Route: 048
     Dates: start: 20161125, end: 20170125

REACTIONS (3)
  - Facial bones fracture [Fatal]
  - Cerebral haemorrhage [Fatal]
  - Epilepsy [Recovered/Resolved]

NARRATIVE: CASE EVENT DATE: 20170125
